FAERS Safety Report 10168131 (Version 1)
Quarter: 2014Q2

REPORT INFORMATION
  Report Type: Spontaneous
  Country: IT (occurrence: IT)
  Receive Date: 20140512
  Receipt Date: 20140512
  Transmission Date: 20141212
  Serious: Yes (Hospitalization)
  Sender: FDA-Public Use
  Company Number: IT-ELI_LILLY_AND_COMPANY-IT201405000533

PATIENT
  Age: 89 Year
  Sex: Male

DRUGS (9)
  1. HUMULIN REGULAR [Suspect]
     Indication: DIABETES MELLITUS
     Dosage: 30 U, QD
     Route: 058
     Dates: start: 20140101, end: 20140418
  2. LANTUS [Suspect]
     Indication: PRODUCT USED FOR UNKNOWN INDICATION
     Dosage: 26 U, QD
     Route: 058
     Dates: start: 20140101, end: 20140428
  3. LANTUS [Suspect]
     Dosage: 20 U, QD
     Route: 058
     Dates: start: 20140428
  4. TIOTROPIUM BROMIDE [Concomitant]
  5. SALMETEROL/FLUTICASONPROPIONAAT [Concomitant]
  6. BISOPROLOL HEMIFUMARATE [Concomitant]
     Route: 048
  7. RAMIPRIL [Concomitant]
  8. TAMSULOSIN HYDROCHLORIDE [Concomitant]
  9. CARDIOASPIRIN [Concomitant]

REACTIONS (2)
  - Bradykinesia [Recovered/Resolved]
  - Hypoglycaemia [Recovered/Resolved]
